FAERS Safety Report 18760506 (Version 1)
Quarter: 2021Q1

REPORT INFORMATION
  Report Type: Spontaneous
  Country: US (occurrence: US)
  Receive Date: 20210119
  Receipt Date: 20210119
  Transmission Date: 20210419
  Serious: No
  Sender: FDA-Public Use
  Company Number: US-ROCHE-2456964

PATIENT
  Age: 65 Year
  Sex: Female

DRUGS (1)
  1. RITUXAN [Suspect]
     Active Substance: RITUXIMAB
     Indication: RHEUMATOID ARTHRITIS
     Dosage: GIVEN DAY 1   DAY 15   DAY 30 AND DAY 45 ;ONGOING: NO
     Route: 042
     Dates: start: 201908, end: 201910

REACTIONS (3)
  - Medication error [Unknown]
  - No adverse event [Unknown]
  - Product prescribing error [Unknown]

NARRATIVE: CASE EVENT DATE: 201908
